FAERS Safety Report 24464781 (Version 1)
Quarter: 2024Q4

REPORT INFORMATION
  Report Type: Report from Study
  Country: US (occurrence: US)
  Receive Date: 20241018
  Receipt Date: 20241018
  Transmission Date: 20250115
  Serious: No
  Sender: ROCHE
  Company Number: US-ROCHE-3506897

PATIENT
  Age: 59 Year
  Sex: Female

DRUGS (7)
  1. XOLAIR [Suspect]
     Active Substance: OMALIZUMAB
     Indication: Asthma
     Route: 058
  2. XOLAIR [Suspect]
     Active Substance: OMALIZUMAB
     Indication: Asthma
  3. XOLAIR [Suspect]
     Active Substance: OMALIZUMAB
     Indication: Wheezing
  4. XOLAIR [Suspect]
     Active Substance: OMALIZUMAB
     Indication: Lung infiltration
  5. XOLAIR [Suspect]
     Active Substance: OMALIZUMAB
     Indication: Chronic obstructive pulmonary disease
  6. XOLAIR [Suspect]
     Active Substance: OMALIZUMAB
     Indication: Chest pain
  7. XOLAIR [Suspect]
     Active Substance: OMALIZUMAB
     Indication: Asthma

REACTIONS (1)
  - Pulmonary function test decreased [Unknown]
